FAERS Safety Report 12795689 (Version 1)
Quarter: 2016Q3

REPORT INFORMATION
  Report Type: Spontaneous
  Country: FR (occurrence: FR)
  Receive Date: 20160929
  Receipt Date: 20160929
  Transmission Date: 20161109
  Serious: Yes (Life-Threatening, Hospitalization)
  Sender: FDA-Public Use
  Company Number: FR-SA-2016SA178220

PATIENT
  Age: 86 Year
  Sex: Male

DRUGS (12)
  1. XARELTO [Concomitant]
     Active Substance: RIVAROXABAN
     Dosage: START DATE: LONGSTANDING
     Route: 065
     Dates: end: 20160803
  2. LYSANXIA [Concomitant]
     Active Substance: PRAZEPAM
     Dosage: START DATE: LONGSTANDING
     Route: 065
     Dates: end: 20160803
  3. FELDENE [Suspect]
     Active Substance: PIROXICAM
     Indication: GOUT
     Dosage: START DATE: LONGSTANDING
     Route: 058
     Dates: start: 20160724, end: 20160727
  4. AMIODARONE [Concomitant]
     Active Substance: AMIODARONE
     Dosage: START DATE: LONGSTANDING
     Route: 065
     Dates: end: 20160803
  5. BISOPROLOL FUMARATE. [Concomitant]
     Active Substance: BISOPROLOL FUMARATE
     Dosage: START DATE: LONGSTANDING
     Route: 065
     Dates: end: 20160803
  6. METFORMIN [Concomitant]
     Active Substance: METFORMIN HYDROCHLORIDE
     Dosage: START DATE: LONGSTANDING
     Route: 065
     Dates: end: 20160803
  7. GALVUS [Concomitant]
     Active Substance: VILDAGLIPTIN
     Dosage: START DATE: LONGSTANDING
     Route: 048
     Dates: end: 20160803
  8. DAONIL [Suspect]
     Active Substance: GLYBURIDE
     Indication: TYPE 2 DIABETES MELLITUS
     Dosage: START DATE: LONGSTANDING
     Route: 048
     Dates: end: 20160803
  9. DIGOXINE [Concomitant]
     Active Substance: DIGOXIN
     Dosage: START DATE: LONGSTANDING
     Route: 065
     Dates: end: 20160803
  10. FUROSEMIDE. [Suspect]
     Active Substance: FUROSEMIDE
     Indication: OEDEMA
     Dosage: START DATE: LONGSTANDING
     Route: 048
     Dates: end: 20160803
  11. TAMSULOSIN [Concomitant]
     Active Substance: TAMSULOSIN
     Dosage: START DATE: LONGSTANDING
     Route: 065
     Dates: end: 20160803
  12. COLCHIMAX [Concomitant]
     Active Substance: COLCHICINE\DICYCLOMINE HYDROCHLORIDE
     Route: 048
     Dates: start: 20160724, end: 20160731

REACTIONS (2)
  - Acute prerenal failure [Recovered/Resolved]
  - Hyperkalaemia [Recovered/Resolved]

NARRATIVE: CASE EVENT DATE: 20160802
